FAERS Safety Report 5068909-6 (Version None)
Quarter: 2006Q3

REPORT INFORMATION
  Report Type: 
  Country: None (occurrence: None)
  Receive Date: 20060731
  Receipt Date: 20060717
  Transmission Date: 20061208
  Serious: Yes (Death)
  Sender: FDA-Public Use
  Company Number: 2006054404

PATIENT
  Age: 78 Year
  Sex: Male

DRUGS (4)
  1. BEXTRA [Suspect]
     Indication: ARTHRITIS
     Dosage: 20 MG (20 MG, 1 IN 1 D),
     Dates: start: 20040223
  2. ADVIL [Concomitant]
  3. ASPIRIN [Concomitant]
  4. ULTRAM [Concomitant]

REACTIONS (1)
  - DEATH [None]
